FAERS Safety Report 10142820 (Version 1)
Quarter: 2014Q2

REPORT INFORMATION
  Report Type: Spontaneous
  Country: US (occurrence: None)
  Receive Date: 20140428
  Receipt Date: 20140428
  Transmission Date: 20141212
  Serious: No
  Sender: FDA-Public Use
  Company Number: None

PATIENT
  Age: 77 Year
  Sex: Female

DRUGS (1)
  1. IMBRUVICA [Suspect]
     Indication: CHRONIC LYMPHOCYTIC LEUKAEMIA
     Route: 048
     Dates: start: 20140322, end: 20140423

REACTIONS (6)
  - Asthenia [None]
  - Feeling abnormal [None]
  - Cough [None]
  - Micturition urgency [None]
  - Urinary incontinence [None]
  - Fatigue [None]
